FAERS Safety Report 10775722 (Version 1)
Quarter: 2015Q1

REPORT INFORMATION
  Report Type: Spontaneous
  Country: US (occurrence: None)
  Receive Date: 20150206
  Receipt Date: 20150206
  Transmission Date: 20150721
  Serious: Yes (Life-Threatening, Hospitalization)
  Sender: FDA-Public Use
  Company Number: None

PATIENT
  Age: 76 Year
  Sex: Male

DRUGS (2)
  1. PRADAXA [Suspect]
     Active Substance: DABIGATRAN ETEXILATE MESYLATE
     Indication: HEART RATE IRREGULAR
     Dosage: 2 PILLS A DAY TWICE DAILY TAKEN BY MOUTH
     Route: 048
     Dates: start: 20110728, end: 20120120
  2. PRADAXA [Suspect]
     Active Substance: DABIGATRAN ETEXILATE MESYLATE
     Indication: ATRIAL FIBRILLATION
     Dosage: 2 PILLS A DAY TWICE DAILY TAKEN BY MOUTH
     Route: 048
     Dates: start: 20110728, end: 20120120

REACTIONS (2)
  - Haemoglobin decreased [None]
  - Haemorrhage urinary tract [None]

NARRATIVE: CASE EVENT DATE: 20120120
